FAERS Safety Report 4682755-4 (Version None)
Quarter: 2005Q2

REPORT INFORMATION
  Report Type: 
  Country: None (occurrence: None)
  Receive Date: 20050606
  Receipt Date: 20050603
  Transmission Date: 20051028
  Serious: Yes (Hospitalization)
  Sender: FDA-Public Use
  Company Number: PHBS2005CN07909

PATIENT
  Age: 40 Year
  Sex: Male

DRUGS (1)
  1. DIOVAN [Suspect]
     Dosage: 80 MG, QD
     Route: 048
     Dates: start: 20050501, end: 20050601

REACTIONS (4)
  - ERYTHEMA [None]
  - LARYNGEAL OEDEMA [None]
  - PRURITUS GENERALISED [None]
  - RASH GENERALISED [None]
